FAERS Safety Report 7239596-3 (Version None)
Quarter: 2011Q1

REPORT INFORMATION
  Report Type: 
  Country: None (occurrence: None)
  Receive Date: 20110122
  Receipt Date: 20100617
  Transmission Date: 20110831
  Serious: No
  Sender: FDA-Public Use
  Company Number: US-PFIZER INC-2010057070

PATIENT
  Sex: Female

DRUGS (3)
  1. PLAVIX [Concomitant]
     Dosage: UNK
  2. VASOTEC [Concomitant]
     Dosage: 10 MG, 2X/DAY
     Route: 048
  3. PROCARDIA [Suspect]
     Indication: BLOOD PRESSURE ABNORMAL
     Dosage: 60 MG, 1X/DAY
     Route: 048
     Dates: start: 20080101

REACTIONS (4)
  - RASH [None]
  - DYSPHONIA [None]
  - DYSGEUSIA [None]
  - HEART RATE INCREASED [None]
